FAERS Safety Report 11173071 (Version 3)
Quarter: 2015Q2

REPORT INFORMATION
  Report Type: Spontaneous
  Country: BR (occurrence: AU)
  Receive Date: 20150608
  Receipt Date: 20150622
  Transmission Date: 20150821
  Serious: Yes (Other)
  Sender: FDA-Public Use
  Company Number: BR-BAYER-2015-308737

PATIENT
  Age: 41 Year
  Sex: Female

DRUGS (6)
  1. XARELTO [Suspect]
     Active Substance: RIVAROXABAN
     Indication: THROMBOSIS
     Dosage: 15 MG, BID
     Route: 048
     Dates: start: 20150430, end: 20150528
  2. XARELTO [Suspect]
     Active Substance: RIVAROXABAN
     Indication: THROMBOSIS
     Dosage: 15 MG, QD
     Route: 048
     Dates: start: 20150420, end: 20150429
  3. XARELTO [Suspect]
     Active Substance: RIVAROXABAN
     Indication: THROMBOSIS
     Dosage: 15 MG, BID
     Route: 048
     Dates: start: 2015, end: 2015
  4. XARELTO [Suspect]
     Active Substance: RIVAROXABAN
     Indication: THROMBOSIS
     Dosage: 15 MG, ONCE
     Route: 048
     Dates: start: 20150603, end: 20150603
  5. KEFLEX [Concomitant]
     Active Substance: CEPHALEXIN
     Indication: THROMBOSIS
     Dosage: UNK
     Dates: start: 20150323
  6. BAYER ASPIRIN [Suspect]
     Active Substance: ASPIRIN
     Indication: THROMBOSIS
     Dosage: UNK, UNK
     Route: 048
     Dates: start: 20150323, end: 20150420

REACTIONS (16)
  - Swollen tongue [Recovered/Resolved]
  - Dyspnoea [Recovered/Resolved]
  - Off label use [None]
  - Swelling face [Recovered/Resolved]
  - Asthenia [Recovered/Resolved]
  - Lip swelling [Recovered/Resolved]
  - Abdominal pain upper [Recovered/Resolved]
  - Off label use [None]
  - Dizziness [Recovered/Resolved]
  - Menorrhagia [Recovered/Resolved]
  - Nausea [Recovered/Resolved]
  - Diarrhoea [Recovered/Resolved]
  - Formication [Recovered/Resolved]
  - Syncope [Recovering/Resolving]
  - Skin discolouration [Recovered/Resolved]
  - Tremor [Recovered/Resolved]

NARRATIVE: CASE EVENT DATE: 201503
